FAERS Safety Report 10173627 (Version 1)
Quarter: 2014Q2

REPORT INFORMATION
  Report Type: Spontaneous
  Country: CA (occurrence: None)
  Receive Date: 20140513
  Receipt Date: 20140513
  Transmission Date: 20141212
  Serious: Yes (Other)
  Sender: FDA-Public Use
  Company Number: ADR-2014-00794

PATIENT
  Sex: Male

DRUGS (1)
  1. LIORESAL [Suspect]

REACTIONS (3)
  - Implant site infection [None]
  - Implant site vesicles [None]
  - Dermatitis allergic [None]
